FAERS Safety Report 4839666-0 (Version None)
Quarter: 2005Q4

REPORT INFORMATION
  Report Type: 
  Country: None (occurrence: None)
  Receive Date: 20051129
  Receipt Date: 20050512
  Transmission Date: 20060501
  Serious: No
  Sender: FDA-Public Use
  Company Number: US-GLAXOSMITHKLINE-A0558362A

PATIENT
  Age: 61 Year
  Sex: Female

DRUGS (5)
  1. WELLBUTRIN SR [Suspect]
     Indication: DEPRESSION
     Dosage: 150MG TWICE PER DAY
     Route: 048
     Dates: start: 19990101, end: 20050510
  2. LEVOXYL [Concomitant]
  3. NORVASC [Concomitant]
  4. SLEEPING PILLS [Concomitant]
  5. DIURETIC [Concomitant]

REACTIONS (2)
  - DEPRESSION [None]
  - PAIN [None]
